FAERS Safety Report 6719286-3 (Version None)
Quarter: 2010Q2

REPORT INFORMATION
  Report Type: 
  Country: None (occurrence: None)
  Receive Date: 20100507
  Receipt Date: 20100427
  Transmission Date: 20101027
  Serious: Yes (Other)
  Sender: FDA-Public Use
  Company Number: DSA_42586_2010

PATIENT
  Sex: Female
  Weight: 61.6892 kg

DRUGS (9)
  1. XENAZINE [Suspect]
     Indication: HUNTINGTON'S CHOREA
     Dosage: 25 MG TID ORAL
     Route: 048
     Dates: start: 20080401, end: 20100105
  2. ZYPREXA [Suspect]
     Indication: DRUG USE FOR UNKNOWN INDICATION
     Dosage: 5 MB BID AND 10 MG QHS ORAL, 2.5 MG BID AND 10 MG QHS ORAL
     Route: 048
  3. DEPO-PROVERA [Concomitant]
  4. ARICEPT [Concomitant]
  5. CLONAZEPAM [Concomitant]
  6. NAMENDA [Concomitant]
  7. OXYTROL [Concomitant]
  8. TRAZODONE HCL [Concomitant]
  9. TYLENOL (CAPLET) [Concomitant]

REACTIONS (10)
  - CARDIAC DISORDER [None]
  - COMMUNICATION DISORDER [None]
  - DISEASE COMPLICATION [None]
  - DROOLING [None]
  - ECCHYMOSIS [None]
  - FALL [None]
  - HYPERREFLEXIA [None]
  - MOTOR DYSFUNCTION [None]
  - POSTURE ABNORMAL [None]
  - SEDATION [None]
